FAERS Safety Report 15562154 (Version 1)
Quarter: 2018Q4

REPORT INFORMATION
  Report Type: Spontaneous
  Country: DE (occurrence: DE)
  Receive Date: 20181029
  Receipt Date: 20181029
  Transmission Date: 20190205
  Serious: Yes (Hospitalization)
  Sender: FDA-Public Use
  Company Number: PHHY2018DE138163

PATIENT
  Sex: Female

DRUGS (1)
  1. EXFORGE [Suspect]
     Active Substance: AMLODIPINE BESYLATE\VALSARTAN
     Indication: HYPERTENSION
     Dosage: 1 DF, QD
     Route: 065
     Dates: start: 201711

REACTIONS (16)
  - Hypotension [Unknown]
  - Insomnia [Unknown]
  - Tremor [Unknown]
  - Heart rate increased [Unknown]
  - Abdominal distension [Unknown]
  - Dizziness [Unknown]
  - Pain in extremity [Unknown]
  - Weight increased [Unknown]
  - Hot flush [Unknown]
  - Asthenia [Unknown]
  - Swelling face [Unknown]
  - Movement disorder [Unknown]
  - Erythema [Unknown]
  - Palpitations [Unknown]
  - Visual impairment [Unknown]
  - Fall [Unknown]

NARRATIVE: CASE EVENT DATE: 201711
